FAERS Safety Report 4794919-X (Version None)
Quarter: 2005Q3

REPORT INFORMATION
  Report Type: 
  Country: None (occurrence: None)
  Receive Date: 20050914
  Receipt Date: 20040830
  Transmission Date: 20060218
  Serious: Yes (Hospitalization, Other)
  Sender: FDA-Public Use
  Company Number: 163-20785-04080602

PATIENT
  Age: 65 Year
  Sex: Female

DRUGS (9)
  1. THALOMID [Suspect]
     Indication: MYELOFIBROSIS
     Dosage: 5SEE IMAGE
     Route: 048
     Dates: start: 20040322, end: 20040601
  2. THALOMID [Suspect]
     Indication: MYELOFIBROSIS
     Dosage: 5SEE IMAGE
     Route: 048
     Dates: start: 20040601, end: 20040701
  3. THALOMID [Suspect]
     Indication: MYELOFIBROSIS
     Dosage: 5SEE IMAGE
     Route: 048
     Dates: start: 20040701, end: 20040824
  4. THALOMID [Suspect]
     Indication: MYELOFIBROSIS
     Dosage: 5SEE IMAGE
     Route: 048
     Dates: start: 20040825
  5. LEXAPRO [Concomitant]
  6. VITAMIN B6 [Concomitant]
  7. MULTIVITAMIN [Concomitant]
  8. CALCIUM (CALCIUM) [Concomitant]
  9. COLCHICINE (COLCHICINE) [Concomitant]

REACTIONS (7)
  - FATIGUE [None]
  - GOUT [None]
  - HAEMATOMA [None]
  - HAEMOGLOBIN DECREASED [None]
  - HYPOTENSION [None]
  - PLATELET COUNT DECREASED [None]
  - VIRAL INFECTION [None]
